FAERS Safety Report 6401061-0 (Version None)
Quarter: 2009Q4

REPORT INFORMATION
  Report Type: 
  Country: None (occurrence: None)
  Receive Date: 20091015
  Receipt Date: 20091008
  Transmission Date: 20100525
  Serious: Yes (Hospitalization)
  Sender: FDA-Public Use
  Company Number: GB-WYE-G04474109

PATIENT
  Sex: Female
  Weight: 70 kg

DRUGS (13)
  1. RELISTOR [Suspect]
     Indication: CONSTIPATION
     Dosage: 12MG, ALTERNATE DAYS
     Route: 058
     Dates: start: 20090812, end: 20090917
  2. OXYNORM [Concomitant]
     Indication: ABDOMINAL PAIN
     Dosage: 430 MG EVERY 1 PRN
     Route: 048
  3. NULYTELY [Concomitant]
     Indication: CONSTIPATION
     Route: 048
     Dates: end: 20090917
  4. SENNA [Concomitant]
     Indication: CONSTIPATION
     Route: 048
     Dates: end: 20090917
  5. CAPECITABINE [Concomitant]
     Indication: CHEMOTHERAPY
     Dosage: DOSAGE AND FREQUENCY UNSPECIFIED
     Route: 042
     Dates: start: 20090101, end: 20090701
  6. CYCLIZINE [Concomitant]
     Indication: NAUSEA
     Route: 048
     Dates: end: 20090917
  7. DEXAMETHASONE 0.5MG TAB [Concomitant]
     Indication: PAIN
     Dosage: UNKNOWN
     Route: 048
  8. DEXAMETHASONE 0.5MG TAB [Concomitant]
     Route: 048
  9. LANSOPRAZOLE [Concomitant]
     Indication: GASTRITIS PROPHYLAXIS
     Route: 048
  10. PARACETAMOL [Concomitant]
     Indication: PAIN
     Route: 048
  11. OXALIPLATIN [Concomitant]
     Indication: CHEMOTHERAPY
     Dosage: DOSAGE AND FREQUENCY UNSPECIFIED
     Route: 042
     Dates: start: 20090101, end: 20090701
  12. OXYCONTIN [Concomitant]
     Indication: ABDOMINAL PAIN
     Route: 048
     Dates: end: 20090917
  13. AMITRIPTYLINE [Concomitant]
     Indication: PAIN
     Dosage: 25 MG AM, 50 MG PM
     Route: 048

REACTIONS (1)
  - SMALL INTESTINAL OBSTRUCTION [None]
